FAERS Safety Report 9727009 (Version 1)
Quarter: 2013Q4

REPORT INFORMATION
  Report Type: Spontaneous
  Country: US (occurrence: US)
  Receive Date: 20131203
  Receipt Date: 20131203
  Transmission Date: 20140711
  Serious: No
  Sender: FDA-Public Use
  Company Number: US-NOVEN-13US007052

PATIENT
  Age: 45 Year
  Sex: Female

DRUGS (5)
  1. FENTANYL [Suspect]
     Indication: PAIN
     Dosage: 50 UG, QOD
     Route: 062
     Dates: start: 201305
  2. ANTIHYPERTENSIVES [Concomitant]
     Dosage: UNK
  3. SYNTHROID [Concomitant]
     Dosage: UNK
  4. AMBIEN [Concomitant]
     Dosage: UNK
  5. IMITREX                            /01044801/ [Concomitant]
     Dosage: UNK

REACTIONS (7)
  - Drug withdrawal syndrome [Not Recovered/Not Resolved]
  - Night sweats [Not Recovered/Not Resolved]
  - Nausea [Not Recovered/Not Resolved]
  - Asthenia [Not Recovered/Not Resolved]
  - Restlessness [Not Recovered/Not Resolved]
  - Drug administration error [None]
  - Product quality issue [Not Recovered/Not Resolved]
